FAERS Safety Report 5187487-4 (Version None)
Quarter: 2006Q4

REPORT INFORMATION
  Report Type: 
  Country: None (occurrence: None)
  Receive Date: 20061220
  Receipt Date: 20060228
  Transmission Date: 20070319
  Serious: No
  Sender: FDA-Public Use
  Company Number: US-AMGEN-US170914

PATIENT
  Sex: Female
  Weight: 74.5 kg

DRUGS (8)
  1. ENBREL [Suspect]
     Indication: RHEUMATOID ARTHRITIS
     Route: 065
     Dates: start: 20030314, end: 20051202
  2. ATENOLOL [Concomitant]
     Route: 065
  3. NEXIUM [Concomitant]
     Route: 065
  4. ZOCOR [Concomitant]
     Route: 065
  5. ZOLOFT [Concomitant]
     Route: 065
  6. VITAMIN CAP [Concomitant]
     Route: 065
  7. PLAVIX [Concomitant]
     Route: 065
  8. DIOVAN [Concomitant]
     Route: 065

REACTIONS (1)
  - FALL [None]
